FAERS Safety Report 8824591 (Version 3)
Quarter: 2013Q2

REPORT INFORMATION
  Report Type: Spontaneous
  Country: US (occurrence: US)
  Receive Date: 20121004
  Receipt Date: 20130522
  Transmission Date: 20140414
  Serious: No
  Sender: FDA-Public Use
  Company Number: US-009507513-1210USA001888

PATIENT
  Age: 66 Year
  Sex: Female

DRUGS (5)
  1. SAPHRIS [Suspect]
     Indication: HYPOMANIA
     Dosage: 2.5 MG, QD
     Route: 048
     Dates: start: 2012, end: 20120926
  2. SAPHRIS [Suspect]
     Indication: POST-TRAUMATIC STRESS DISORDER
  3. PRAZOSIN [Concomitant]
  4. SUDAFED [Concomitant]
  5. CLARITIN [Concomitant]

REACTIONS (1)
  - Hypoaesthesia [Not Recovered/Not Resolved]
